FAERS Safety Report 12837495 (Version 1)
Quarter: 2016Q4

REPORT INFORMATION
  Report Type: Spontaneous
  Country: DE (occurrence: DE)
  Receive Date: 20161012
  Receipt Date: 20161012
  Transmission Date: 20170207
  Serious: Yes (Other)
  Sender: FDA-Public Use
  Company Number: DE-ROCHE-1840127

PATIENT
  Sex: Male

DRUGS (2)
  1. XOLAIR [Suspect]
     Active Substance: OMALIZUMAB
     Indication: ASTHMA
     Dosage: 300 MG, EACH 4 WEEKS
     Route: 065
     Dates: start: 201201
  2. XOLAIR [Suspect]
     Active Substance: OMALIZUMAB
     Dosage: 350 MG AND ADDITIONAL DOSE OF 150 MG DURING POLLEN SEASON
     Route: 065

REACTIONS (9)
  - Skin disorder [Unknown]
  - Type III immune complex mediated reaction [Unknown]
  - Injection site reaction [Unknown]
  - Urticaria [Unknown]
  - Arthropod infestation [Not Recovered/Not Resolved]
  - Erythema [Unknown]
  - Eye disorder [Unknown]
  - Red blood cell sedimentation rate increased [Recovered/Resolved]
  - Drug ineffective [Unknown]

NARRATIVE: CASE EVENT DATE: 2012
